FAERS Safety Report 5090656-5 (Version None)
Quarter: 2006Q3

REPORT INFORMATION
  Report Type: 
  Country: None (occurrence: None)
  Receive Date: 20060823
  Receipt Date: 20060816
  Transmission Date: 20061208
  Serious: Yes (Other)
  Sender: FDA-Public Use
  Company Number: 2006099644

PATIENT
  Age: 20 Year
  Sex: Male
  Weight: 99.3377 kg

DRUGS (2)
  1. LISTERINE (MENTHOL, METHYL SALICYCLATE, EUCALYPTOL, THYMOL) [Suspect]
     Indication: ENEMA ADMINISTRATION
     Dosage: 1 LITER ONCE, RECTAL
     Route: 054
     Dates: start: 20060816, end: 20060816
  2. OXYCODONE HCL [Concomitant]

REACTIONS (4)
  - HAEMORRHAGE [None]
  - INCORRECT DOSE ADMINISTERED [None]
  - INCORRECT ROUTE OF DRUG ADMINISTRATION [None]
  - INTENTIONAL DRUG MISUSE [None]
